FAERS Safety Report 6706702-6 (Version None)
Quarter: 2010Q2

REPORT INFORMATION
  Report Type: 
  Country: None (occurrence: None)
  Receive Date: 20100503
  Receipt Date: 20100421
  Transmission Date: 20101027
  Serious: Yes (Other)
  Sender: FDA-Public Use
  Company Number: US-ELI_LILLY_AND_COMPANY-US201004007300

PATIENT
  Sex: Female

DRUGS (1)
  1. EFFIENT [Suspect]
     Indication: PERCUTANEOUS CORONARY INTERVENTION
     Dosage: 60 MG, UNK
     Route: 048

REACTIONS (2)
  - CARDIAC TAMPONADE [None]
  - CORONARY ARTERY OCCLUSION [None]
